FAERS Safety Report 11477100 (Version 1)
Quarter: 2015Q3

REPORT INFORMATION
  Report Type: Spontaneous
  Country: US (occurrence: US)
  Receive Date: 20150909
  Receipt Date: 20150909
  Transmission Date: 20151125
  Serious: Yes (Other)
  Sender: FDA-Public Use
  Company Number: US-ASTRAZENECA-2013SE41731

PATIENT
  Age: 55 Year
  Sex: Female
  Weight: 91.2 kg

DRUGS (22)
  1. OXYCODONE [Concomitant]
     Active Substance: OXYCODONE
  2. METOCLOPRAMIDE. [Concomitant]
     Active Substance: METOCLOPRAMIDE
  3. AMLACTIN [Concomitant]
     Active Substance: AMMONIUM LACTATE
  4. SIMVASTATIN. [Concomitant]
     Active Substance: SIMVASTATIN
  5. TAMSULOSIN [Concomitant]
     Active Substance: TAMSULOSIN
  6. INSULIN [Concomitant]
     Active Substance: INSULIN NOS
     Dosage: 1CC WITH 30G NEEDLE,BID
  7. HUMULIN NOS [Suspect]
     Active Substance: INSULIN HUMAN
     Route: 058
     Dates: start: 201211
  8. LEVOTHYROXINE. [Concomitant]
     Active Substance: LEVOTHYROXINE
  9. BENZONATATE. [Concomitant]
     Active Substance: BENZONATATE
     Indication: COUGH
  10. FISH OIL [Concomitant]
     Active Substance: FISH OIL
  11. BYETTA [Suspect]
     Active Substance: EXENATIDE
     Indication: TYPE 2 DIABETES MELLITUS
     Route: 058
     Dates: start: 20130429, end: 20130614
  12. AMLODIPINE [Concomitant]
     Active Substance: AMLODIPINE BESYLATE
  13. QUINAPRIL [Concomitant]
     Active Substance: QUINAPRIL\QUINAPRIL HYDROCHLORIDE
     Dosage: EVERY DAY
  14. BYETTA [Suspect]
     Active Substance: EXENATIDE
     Indication: TYPE 2 DIABETES MELLITUS
     Route: 058
     Dates: start: 201302
  15. DEXLANSOPRAZOLE [Suspect]
     Active Substance: DEXLANSOPRAZOLE
     Route: 065
     Dates: start: 201305
  16. LEVOTHROID [Concomitant]
     Active Substance: LEVOTHYROXINE SODIUM
  17. ALBUTEROL. [Concomitant]
     Active Substance: ALBUTEROL
     Dosage: 2 PUFFS 4 TIMES A DAY,AS NEEDED
  18. NORVASC [Concomitant]
     Active Substance: AMLODIPINE BESYLATE
  19. VITAMIN D3 [Concomitant]
     Active Substance: CHOLECALCIFEROL
  20. PANTOPRAZOLE [Suspect]
     Active Substance: PANTOPRAZOLE SODIUM
     Dosage: UNK
     Route: 065
     Dates: start: 20130322, end: 20130520
  21. FENOFIBRATE. [Concomitant]
     Active Substance: FENOFIBRATE
  22. PERCOCET [Concomitant]
     Active Substance: ACETAMINOPHEN\OXYCODONE HYDROCHLORIDE
     Dosage: 10/325 TABS,1 TO 2 TABS Q4HRS

REACTIONS (16)
  - Skin disorder [Unknown]
  - Trigger finger [Unknown]
  - Pruritus generalised [Unknown]
  - Vomiting [Recovering/Resolving]
  - Fall [Unknown]
  - Hand fracture [Unknown]
  - Cough [Unknown]
  - Decreased appetite [Unknown]
  - Diabetes mellitus inadequate control [Unknown]
  - Injection site pruritus [Unknown]
  - Nausea [Recovering/Resolving]
  - Rash [Recovering/Resolving]
  - Malaise [Unknown]
  - Blood glucose abnormal [Unknown]
  - Ligament rupture [Unknown]
  - Weight decreased [Unknown]

NARRATIVE: CASE EVENT DATE: 20150124
